FAERS Safety Report 19199420 (Version 1)
Quarter: 2021Q2

REPORT INFORMATION
  Report Type: Spontaneous
  Country: US (occurrence: US)
  Receive Date: 20210429
  Receipt Date: 20210429
  Transmission Date: 20210717
  Serious: No
  Sender: FDA-Public Use
  Company Number: None

PATIENT
  Age: 46 Year
  Sex: Female
  Weight: 113.85 kg

DRUGS (10)
  1. LISINIPRIL [Concomitant]
     Active Substance: LISINOPRIL
  2. ALLEGRA [Concomitant]
     Active Substance: FEXOFENADINE HYDROCHLORIDE
  3. ZETIA [Concomitant]
     Active Substance: EZETIMIBE
  4. VICTOZA [Suspect]
     Active Substance: LIRAGLUTIDE
     Indication: TYPE 2 DIABETES MELLITUS
     Dosage: ?          QUANTITY:.75 INJECTION(S);?
     Route: 058
  5. SYNTHEOID [Concomitant]
  6. OMEPREZOLE [Concomitant]
     Active Substance: OMEPRAZOLE
  7. NOVOLOG [Concomitant]
     Active Substance: INSULIN ASPART
  8. STOOL SOFTENER (DOCUSATE SODIUM) [Concomitant]
     Active Substance: DOCUSATE SODIUM
  9. ASTRAVATION [Concomitant]
  10. LAXATIVE [Concomitant]
     Active Substance: UNSPECIFIED INGREDIENT

REACTIONS (1)
  - Emotional disorder [None]
